FAERS Safety Report 8800113 (Version 1)
Quarter: 2012Q4

REPORT INFORMATION
  Report Type: Spontaneous
  Country: US (occurrence: None)
  Receive Date: 20120918
  Receipt Date: 20120918
  Transmission Date: 20130627
  Serious: Yes (Hospitalization)
  Sender: FDA-Public Use
  Company Number: None

PATIENT
  Age: 41 Year
  Sex: Female
  Weight: 58.97 kg

DRUGS (1)
  1. TRI-SPRINTEC [Suspect]
     Indication: BIRTH CONTROL
     Dosage: 1 pill day, daily,  PO
     Route: 048
     Dates: start: 20120819, end: 20120911

REACTIONS (1)
  - Myocardial infarction [None]
